FAERS Safety Report 9209296 (Version 1)
Quarter: 2013Q2

REPORT INFORMATION
  Report Type: Spontaneous
  Country: IT (occurrence: IT)
  Receive Date: 20130404
  Receipt Date: 20130404
  Transmission Date: 20140414
  Serious: Yes (Life-Threatening, Other)
  Sender: FDA-Public Use
  Company Number: IT-UCBSA-081768

PATIENT
  Age: 40 Year
  Sex: Male

DRUGS (1)
  1. XYZAL [Suspect]
     Indication: DRUG HYPERSENSITIVITY
     Dosage: 20 FILM COATED TABLETS
     Route: 048
     Dates: start: 20130227, end: 20130227

REACTIONS (4)
  - Lip oedema [Recovering/Resolving]
  - Pruritus [Recovering/Resolving]
  - Throat tightness [Recovering/Resolving]
  - Urticaria [Recovering/Resolving]
